FAERS Safety Report 6417448-6 (Version None)
Quarter: 2009Q4

REPORT INFORMATION
  Report Type: 
  Country: None (occurrence: None)
  Receive Date: 20091028
  Receipt Date: 20091019
  Transmission Date: 20100525
  Serious: Yes (Death, Other)
  Sender: FDA-Public Use
  Company Number: AU-ASTRAZENECA-2009SE02552

PATIENT
  Age: 26693 Day
  Sex: Female

DRUGS (4)
  1. NEXIUM [Suspect]
     Indication: GASTROOESOPHAGEAL REFLUX DISEASE
     Route: 048
     Dates: start: 20081007, end: 20090214
  2. ATENOLOL [Concomitant]
     Indication: HYPERTENSION
     Route: 048
     Dates: end: 20090214
  3. MICARDIS HCT [Concomitant]
     Indication: HYPERTENSION
     Route: 048
     Dates: start: 20071009, end: 20090214
  4. MAXOLON [Concomitant]
     Route: 048
     Dates: start: 20090115

REACTIONS (2)
  - RENAL FAILURE [None]
  - TUBULOINTERSTITIAL NEPHRITIS [None]
